FAERS Safety Report 14717898 (Version 1)
Quarter: 2018Q2

REPORT INFORMATION
  Report Type: Spontaneous
  Country: US (occurrence: US)
  Receive Date: 20180404
  Receipt Date: 20180404
  Transmission Date: 20180711
  Serious: No
  Sender: FDA-Public Use
  Company Number: US-SA-2018SA048594

PATIENT
  Age: 58 Year
  Sex: Female

DRUGS (2)
  1. DUPIXENT [Suspect]
     Active Substance: DUPILUMAB
     Indication: DERMATITIS ATOPIC
     Route: 058
     Dates: start: 2018
  2. DUPIXENT [Suspect]
     Active Substance: DUPILUMAB
     Indication: DERMATITIS ATOPIC
     Route: 058
     Dates: start: 20180217, end: 20180217

REACTIONS (9)
  - Blister [Not Recovered/Not Resolved]
  - Purulent discharge [Not Recovered/Not Resolved]
  - Skin discolouration [Unknown]
  - Staphylococcal skin infection [Unknown]
  - Dermatitis [Unknown]
  - Injection site pain [Recovered/Resolved]
  - Oral herpes [Unknown]
  - Pain in extremity [Unknown]
  - Blister rupture [Unknown]

NARRATIVE: CASE EVENT DATE: 2018
